FAERS Safety Report 18381360 (Version 1)
Quarter: 2020Q4

REPORT INFORMATION
  Report Type: Spontaneous
  Country: US (occurrence: US)
  Receive Date: 20201013
  Receipt Date: 20201013
  Transmission Date: 20210114
  Serious: Yes (Other)
  Sender: FDA-Public Use
  Company Number: None

PATIENT
  Age: 58 Year
  Sex: Female
  Weight: 78.75 kg

DRUGS (4)
  1. SYMBICORT 4.5MCG [Concomitant]
  2. LEVOTHYROXINE. [Suspect]
     Active Substance: LEVOTHYROXINE
     Indication: THYROID DISORDER
     Dosage: ?          QUANTITY:1 TABLET(S);?
     Dates: start: 20200926, end: 20201003
  3. LOSARTIN 50MG AUROBINDO [Concomitant]
     Active Substance: LOSARTAN POTASSIUM
  4. VITAMIN D2 50,000 UNIT [Concomitant]

REACTIONS (6)
  - Asthenia [None]
  - Fatigue [None]
  - Nasopharyngitis [None]
  - Irritability [None]
  - Weight increased [None]
  - Product substitution issue [None]

NARRATIVE: CASE EVENT DATE: 20200926
